FAERS Safety Report 11373965 (Version 1)
Quarter: 2015Q3

REPORT INFORMATION
  Report Type: Spontaneous
  Country: US (occurrence: None)
  Receive Date: 20150804
  Receipt Date: 20150804
  Transmission Date: 20151125
  Serious: No
  Sender: FDA-Public Use
  Company Number: US-SEPTODONT-201402218

PATIENT
  Age: 39 Year
  Sex: Female
  Weight: 54 kg

DRUGS (2)
  1. LIDOCAINE OINTMENT USP [Concomitant]
  2. SEPTOCAINE AND EPINEPHRINE [Suspect]
     Active Substance: ARTICAINE HYDROCHLORIDE\EPINEPHRINE BITARTRATE
     Indication: LOCAL ANAESTHESIA
     Route: 004
     Dates: start: 20140815, end: 20140815

REACTIONS (5)
  - VIIth nerve paralysis [None]
  - Hypoaesthesia oral [None]
  - Blood pressure systolic decreased [None]
  - Adverse drug reaction [None]
  - Anxiety [None]

NARRATIVE: CASE EVENT DATE: 20140815
